FAERS Safety Report 9125197 (Version 1)
Quarter: 2013Q1

REPORT INFORMATION
  Report Type: Spontaneous
  Country: US (occurrence: US)
  Receive Date: 20130117
  Receipt Date: 20130117
  Transmission Date: 20140127
  Serious: Yes (Other)
  Sender: FDA-Public Use
  Company Number: US-BAYER-2013-004535

PATIENT
  Age: 57 Year
  Sex: Female
  Weight: 63.49 kg

DRUGS (5)
  1. ALEVE CAPLET/TABLET,MIDOL EXTENDED RELIEF CAPLET [Suspect]
     Indication: RHEUMATOID ARTHRITIS
     Dosage: 4 IN PAST 24 HOURS TAKEN
     Route: 048
  2. ANTIBIOTICS [Concomitant]
  3. METFORMIN [Concomitant]
  4. CLEOCIN [Concomitant]
  5. VICODIN [Concomitant]

REACTIONS (3)
  - Haemorrhage [Recovered/Resolved]
  - Overdose [None]
  - Abdominal pain upper [Recovered/Resolved]
